FAERS Safety Report 22920592 (Version 3)
Quarter: 2023Q4

REPORT INFORMATION
  Report Type: Other
  Country: US (occurrence: US)
  Receive Date: 20230908
  Receipt Date: 20231220
  Transmission Date: 20240109
  Serious: Yes (Other)
  Sender: FDA-Public Use
  Company Number: US-INTERCEPT-PM2023001476

PATIENT
  Sex: Female

DRUGS (1)
  1. OCALIVA [Suspect]
     Active Substance: OBETICHOLIC ACID
     Indication: Primary biliary cholangitis
     Dosage: 5 MILLIGRAM, QD
     Route: 048
     Dates: start: 20230802, end: 20231113

REACTIONS (11)
  - Oropharyngeal blistering [Recovered/Resolved]
  - Insomnia [Recovering/Resolving]
  - Abnormal dreams [Unknown]
  - Livedo reticularis [Unknown]
  - Gastrooesophageal reflux disease [Not Recovered/Not Resolved]
  - Oral mucosal erythema [Unknown]
  - Hiatus hernia [Recovering/Resolving]
  - Oropharyngeal pain [Not Recovered/Not Resolved]
  - Rash erythematous [Recovering/Resolving]
  - Asthenia [Unknown]
  - Fatigue [Recovering/Resolving]

NARRATIVE: CASE EVENT DATE: 20230101
